FAERS Safety Report 8010441-1 (Version None)
Quarter: 2011Q4

REPORT INFORMATION
  Report Type: 
  Country: None (occurrence: None)
  Receive Date: 20111222
  Receipt Date: 20111215
  Transmission Date: 20120403
  Serious: Yes (Death)
  Sender: FDA-Public Use
  Company Number: ADR-2011-11373

PATIENT
  Age: 87 Year
  Sex: Male

DRUGS (5)
  1. DILAUDID [Concomitant]
  2. BACLOFEN [Suspect]
     Indication: BREAST DISORDER
     Dosage: 87.4 MCG,DAILY,INTRATH
     Route: 037
  3. BACLOFEN [Suspect]
     Indication: PAIN
     Dosage: 87.4 MCG,DAILY,INTRATH
     Route: 037
  4. BUPIVACAINE HCL [Concomitant]
  5. CLONIDINE [Concomitant]

REACTIONS (1)
  - BREAST CANCER METASTATIC [None]
